FAERS Safety Report 4914982-2 (Version None)
Quarter: 2006Q1

REPORT INFORMATION
  Report Type: 
  Country: None (occurrence: None)
  Receive Date: 20060217
  Receipt Date: 20060125
  Transmission Date: 20060701
  Serious: Yes (Hospitalization, Other)
  Sender: FDA-Public Use
  Company Number: PHBS2006JP01524

PATIENT
  Age: 88 Year
  Sex: Female
  Weight: 47 kg

DRUGS (4)
  1. AMLODIPINE BESYLATE [Suspect]
     Route: 048
  2. BEZAFIBRATE [Concomitant]
     Route: 048
  3. CALCIUM LACTATE [Concomitant]
     Route: 048
  4. VALSARTAN [Suspect]
     Route: 048

REACTIONS (12)
  - ARTERIAL STENOSIS [None]
  - ARTERIOSCLEROSIS [None]
  - CEREBRAL ISCHAEMIA [None]
  - COGNITIVE DISORDER [None]
  - CONTUSION [None]
  - DEMENTIA ALZHEIMER'S TYPE [None]
  - DISORIENTATION [None]
  - DIZZINESS [None]
  - FALL [None]
  - MEMORY IMPAIRMENT [None]
  - SUBCLAVIAN STEAL SYNDROME [None]
  - SUBDURAL HAEMATOMA [None]
